FAERS Safety Report 8423316-0 (Version None)
Quarter: 2012Q2

REPORT INFORMATION
  Report Type: 
  Country: None (occurrence: None)
  Receive Date: 20120608
  Receipt Date: 20120530
  Transmission Date: 20120825
  Serious: Yes (Death, Hospitalization)
  Sender: FDA-Public Use
  Company Number: US-ACTELION-A-NJ2012-63762

PATIENT

DRUGS (4)
  1. REVATIO [Concomitant]
  2. TRACLEER [Suspect]
     Indication: PULMONARY ARTERIAL HYPERTENSION
     Dosage: UNK
     Route: 048
     Dates: start: 20100625, end: 20120101
  3. ASPIRIN [Concomitant]
  4. CARDIZEM [Concomitant]

REACTIONS (5)
  - HYPOTENSION [None]
  - HAND FRACTURE [None]
  - LACERATION [None]
  - VASCULAR GRAFT [None]
  - FALL [None]
